FAERS Safety Report 10163659 (Version 1)
Quarter: 2014Q2

REPORT INFORMATION
  Report Type: Report from Study
  Country: DE (occurrence: NL)
  Receive Date: 20140509
  Receipt Date: 20140509
  Transmission Date: 20141212
  Serious: Yes (Hospitalization)
  Sender: FDA-Public Use
  Company Number: DE-ACTELION-A-NJ2009-98343

PATIENT
  Age: 65 Year
  Sex: Female

DRUGS (3)
  1. VENTAVIS [Suspect]
     Indication: PRODUCT USED FOR UNKNOWN INDICATION
     Dosage: 6 TIMES DAILY
     Route: 055
     Dates: start: 200903, end: 20090909
  2. TRACLEER [Concomitant]
     Indication: PULMONARY ARTERIAL HYPERTENSION
     Dosage: UNK
     Route: 048
     Dates: end: 2009
  3. FLOLAN [Concomitant]
     Dosage: UNK
     Dates: start: 20090812

REACTIONS (4)
  - General physical health deterioration [Unknown]
  - Malaise [Unknown]
  - Malaise [Unknown]
  - Drug ineffective [Unknown]
